FAERS Safety Report 5693136-9 (Version None)
Quarter: 2008Q2

REPORT INFORMATION
  Report Type: 
  Country: None (occurrence: None)
  Receive Date: 20080402
  Receipt Date: 20080402
  Transmission Date: 20081010
  Serious: Yes (Life-Threatening)
  Sender: FDA-Public Use
  Company Number: None

PATIENT
  Age: 40 Year
  Sex: Male
  Weight: 78.0187 kg

DRUGS (1)
  1. ACETAMINOPHEN [Suspect]
     Indication: BACK PAIN
     Dosage: 1000MG PID PO
     Route: 048

REACTIONS (4)
  - DIZZINESS [None]
  - FALL [None]
  - ILL-DEFINED DISORDER [None]
  - NERVE INJURY [None]
